FAERS Safety Report 4643436-6 (Version None)
Quarter: 2005Q2

REPORT INFORMATION
  Report Type: 
  Country: None (occurrence: None)
  Receive Date: 20050420
  Receipt Date: 20050420
  Transmission Date: 20051028
  Serious: Yes (Disabling)
  Sender: FDA-Public Use
  Company Number: None

PATIENT
  Age: 21 Year
  Sex: Male
  Weight: 52.1637 kg

DRUGS (1)
  1. OXYCONTIN [Suspect]

REACTIONS (3)
  - DEPENDENCE [None]
  - HOMELESS [None]
  - THEFT [None]
